FAERS Safety Report 25170046 (Version 2)
Quarter: 2025Q2

REPORT INFORMATION
  Report Type: Spontaneous
  Country: US (occurrence: US)
  Receive Date: 20250407
  Receipt Date: 20250418
  Transmission Date: 20250716
  Serious: No
  Sender: BIOMARIN
  Company Number: US-BIOMARINAP-US-2025-165061

PATIENT

DRUGS (2)
  1. PALYNZIQ [Suspect]
     Active Substance: PEGVALIASE-PQPZ
     Indication: Product used for unknown indication
     Dosage: 10 MILLIGRAM, QD
     Route: 065
  2. PALYNZIQ [Suspect]
     Active Substance: PEGVALIASE-PQPZ
     Route: 065
     Dates: start: 20250219

REACTIONS (1)
  - Maternal exposure during pregnancy [Unknown]
